FAERS Safety Report 5399335-8 (Version None)
Quarter: 2007Q3

REPORT INFORMATION
  Report Type: 
  Country: None (occurrence: None)
  Receive Date: 20070727
  Receipt Date: 20070718
  Transmission Date: 20080115
  Serious: Yes (Hospitalization)
  Sender: FDA-Public Use
  Company Number: DE-ROCHE-476782

PATIENT
  Age: 52 Year
  Sex: Female
  Weight: 96 kg

DRUGS (8)
  1. KEVATRIL [Suspect]
     Indication: ANTIEMETIC SUPPORTIVE CARE
     Route: 042
  2. DOCETAXEL [Suspect]
     Indication: BREAST CANCER
     Dosage: GIVEN ON DAY ONE EVERY 21 DAYS. FORM REPORTED AS INFUSION.
     Route: 042
     Dates: start: 20061116, end: 20061228
  3. DOCETAXEL [Suspect]
     Route: 042
     Dates: start: 20070105, end: 20070105
  4. EPIRUBICIN [Suspect]
     Indication: BREAST CANCER
     Dosage: GIVEN FOR FOUR CYCLES.
     Route: 042
  5. CYCLOPHOSPHAMIDE [Suspect]
     Indication: BREAST CANCER
     Dosage: GIVEN FOR FOUR CYCLES.
     Route: 042
  6. ENAHEXAL COMP [Concomitant]
     Dosage: TOTAL DAILY DOSE REPORTED AS 10/25 MG.
  7. METOHEXAL RETARD [Concomitant]
     Dosage: DRUG REPORTED AS ^METOHEXAL RET^.
  8. ENAHEXAL [Concomitant]

REACTIONS (1)
  - SYNCOPE [None]
